FAERS Safety Report 21908824 (Version 2)
Quarter: 2023Q1

REPORT INFORMATION
  Report Type: Report from Study
  Country: CL (occurrence: CL)
  Receive Date: 20230125
  Receipt Date: 20230201
  Transmission Date: 20230418
  Serious: Yes (Other)
  Sender: FDA-Public Use
  Company Number: CL-002147023-NVSC2022CL009586

PATIENT
  Age: 12 Year
  Sex: Male
  Weight: 41 kg

DRUGS (2)
  1. OMNITROPE [Suspect]
     Active Substance: SOMATROPIN
     Indication: Short stature
     Dosage: 10 MG/2.4 MG, QD
     Route: 058
     Dates: start: 20211223
  2. OMNITROPE [Suspect]
     Active Substance: SOMATROPIN
     Dosage: 10 MG/ 1.5 ML/ 7.5 IU, QD
     Route: 058

REACTIONS (6)
  - Growth retardation [Unknown]
  - Abdominal pain [Recovering/Resolving]
  - Muscle spasms [Recovering/Resolving]
  - Injection site pain [Recovered/Resolved]
  - Inappropriate schedule of product discontinuation [Unknown]
  - Drug ineffective [Unknown]
